FAERS Safety Report 4758612-1 (Version None)
Quarter: 2005Q3

REPORT INFORMATION
  Report Type: 
  Country: None (occurrence: None)
  Receive Date: 20050826
  Receipt Date: 20050822
  Transmission Date: 20060218
  Serious: Yes (Hospitalization)
  Sender: FDA-Public Use
  Company Number: 2005118095

PATIENT
  Age: 48 Year
  Sex: Female

DRUGS (7)
  1. ALPRAZOLAM [Suspect]
     Indication: ILL-DEFINED DISORDER
     Dosage: ORAL
     Route: 048
  2. HALCION [Concomitant]
  3. TOLEDOMIN (MILNACIPRAN HYDROCHLORIDE) [Concomitant]
  4. FLUNITRAZEPAM (FLUNITRAZEPAM) [Concomitant]
  5. PAXIL [Concomitant]
  6. TASMOLIN (BIPERIDEN [Concomitant]
  7. AMOXAPINE [Concomitant]

REACTIONS (1)
  - VENTRICULAR HYPERTROPHY [None]
